FAERS Safety Report 5361536-2 (Version None)
Quarter: 2007Q2

REPORT INFORMATION
  Report Type: 
  Country: None (occurrence: None)
  Receive Date: 20070619
  Receipt Date: 20070612
  Transmission Date: 20071010
  Serious: Yes (Other)
  Sender: FDA-Public Use
  Company Number: PHBS2007BR09910

PATIENT
  Age: 52 Year
  Sex: Female
  Weight: 80 kg

DRUGS (6)
  1. ANESTHETICS, GENERAL [Suspect]
  2. FLUOXETINE [Concomitant]
     Dosage: 20 MG, QD
     Route: 048
  3. ANESTHETICS NOS [Concomitant]
  4. TRILEPTAL [Suspect]
     Indication: BIPOLAR DISORDER
     Dosage: 300 MG/DAY
     Route: 048
  5. TRILEPTAL [Suspect]
     Dosage: 300 MG, BID
     Route: 048
     Dates: start: 20061127
  6. TRILEPTAL [Suspect]
     Dosage: 600 MG, BID
     Route: 048

REACTIONS (7)
  - CARDIAC DISORDER [None]
  - CHOLELITHIASIS [None]
  - DRUG DISPENSING ERROR [None]
  - HYPERTENSION [None]
  - REFLUX OESOPHAGITIS [None]
  - SOMNOLENCE [None]
  - SURGERY [None]
